FAERS Safety Report 11052852 (Version 2)
Quarter: 2015Q2

REPORT INFORMATION
  Report Type: Spontaneous
  Country: JP (occurrence: None)
  Receive Date: 20150417
  Receipt Date: 20150526
  Transmission Date: 20150821
  Serious: Yes (Other)
  Sender: FDA-Public Use
  Company Number: 2015-000716

PATIENT
  Age: 61 Year
  Sex: Female

DRUGS (17)
  1. DORNER (BERAPROST SODIUM) [Concomitant]
  2. NEORAL [Concomitant]
     Active Substance: CYCLOSPORINE
  3. CELECOX (CELECOXIB) [Concomitant]
     Active Substance: CELECOXIB
  4. BAKTAR (SULFAMETHOXAZOLE, TRIMETHOPRIM) [Concomitant]
  5. JUVELA N (TOCOPHERYL NICOTINATE) [Concomitant]
  6. GABAPEN (GABAPENTIN) [Concomitant]
  7. HUSTAZOL (CLOPERASTINE HYDROCHLORIDE) [Concomitant]
  8. LYRICA [Concomitant]
     Active Substance: PREGABALIN
  9. BAYASPIRIN (ACETYLSALICYLIC ACID) [Concomitant]
  10. LYRICA [Concomitant]
     Active Substance: PREGABALIN
  11. VITAMIN D AND ANALOGUES [Concomitant]
     Active Substance: CHOLECALCIFEROL
  12. OMEPRAZOLE. [Concomitant]
     Active Substance: OMEPRAZOLE
  13. AMLODIN (AMLODIPINE BESILATE) [Concomitant]
  14. LANDSEN (CLONAZEPAM) [Concomitant]
  15. ACTONEL [Suspect]
     Active Substance: RISEDRONATE SODIUM
     Indication: OSTEOPOROSIS
     Route: 048
     Dates: end: 201307
  16. VOLTAREN (DICLOFENAC) [Concomitant]
  17. PREDONINE (PREDNISOLONE) [Concomitant]

REACTIONS (4)
  - Fall [None]
  - Atypical femur fracture [None]
  - Fracture delayed union [None]
  - Femur fracture [None]

NARRATIVE: CASE EVENT DATE: 201307
